FAERS Safety Report 9546940 (Version 1)
Quarter: 2013Q2

REPORT INFORMATION
  Report Type: Spontaneous
  Country: US (occurrence: None)
  Receive Date: 20130606
  Receipt Date: 20130606
  Transmission Date: 20140414
  Serious: Yes (Other)
  Sender: FDA-Public Use
  Company Number: 163-POMAL-13031040

PATIENT
  Age: 78 Year
  Sex: Female
  Weight: 56.25 kg

DRUGS (5)
  1. POMALYST [Suspect]
     Indication: PLASMA CELL MYELOMA
     Dosage: 4 MG,  21 IN 28 D,  PO
     Route: 048
     Dates: start: 20130221
  2. FEXOFENADINE (FEXOFENADINE) [Concomitant]
  3. MIRALAX [Concomitant]
  4. TYLENOL (PARACETAMOL) [Concomitant]
  5. ALIGN (BIFIDOBACTERIUM INFANTIS) [Concomitant]

REACTIONS (4)
  - Balance disorder [None]
  - Disturbance in attention [None]
  - Back pain [None]
  - Constipation [None]
